FAERS Safety Report 5310796-2 (Version None)
Quarter: 2007Q2

REPORT INFORMATION
  Report Type: 
  Country: None (occurrence: None)
  Receive Date: 20070428
  Receipt Date: 20070417
  Transmission Date: 20071010
  Serious: Yes (Death, Hospitalization)
  Sender: FDA-Public Use
  Company Number: CA-PFIZER INC-2007016396

PATIENT
  Sex: Male
  Weight: 103 kg

DRUGS (13)
  1. SU-011,248 [Suspect]
     Indication: GASTROINTESTINAL STROMAL TUMOUR
     Route: 048
     Dates: start: 20070124, end: 20070221
  2. PANTOPRAZOLE SODIUM [Concomitant]
     Route: 048
  3. DURAGESIC-100 [Concomitant]
     Route: 062
  4. DILAUDID [Concomitant]
     Route: 048
  5. CELESTODERM-V [Concomitant]
     Route: 061
  6. DOCUSATE [Concomitant]
     Route: 048
  7. SERAX [Concomitant]
     Route: 048
  8. DERMOVAT [Concomitant]
     Route: 061
  9. CYCLOCORT [Concomitant]
     Route: 061
  10. DIOVAN [Concomitant]
     Route: 048
  11. NORVASC [Concomitant]
     Route: 048
  12. TYLENOL [Concomitant]
     Route: 048
  13. ADVIL [Concomitant]
     Route: 048

REACTIONS (2)
  - DISEASE PROGRESSION [None]
  - GASTROINTESTINAL STROMAL TUMOUR [None]
